FAERS Safety Report 16534021 (Version 3)
Quarter: 2021Q2

REPORT INFORMATION
  Report Type: Spontaneous
  Country: US (occurrence: US)
  Receive Date: 20190704
  Receipt Date: 20210615
  Transmission Date: 20210716
  Serious: Yes (Hospitalization, Other)
  Sender: FDA-Public Use
  Company Number: US-ASTRAZENECA-2018SF65247

PATIENT
  Age: 70 Year
  Sex: Male
  Weight: 127 kg

DRUGS (63)
  1. PREVACID 24 HR [Suspect]
     Active Substance: LANSOPRAZOLE
     Indication: GASTROOESOPHAGEAL REFLUX DISEASE
     Route: 065
     Dates: start: 200906, end: 201606
  2. ONDASETRON [Concomitant]
     Active Substance: ONDANSETRON
  3. PEPCID [Concomitant]
     Active Substance: FAMOTIDINE
  4. FEXOFENADINE [Concomitant]
     Active Substance: FEXOFENADINE HYDROCHLORIDE
  5. CYCLOBENZAPRINE. [Concomitant]
     Active Substance: CYCLOBENZAPRINE
  6. ENOXAPARIN [Concomitant]
     Active Substance: ENOXAPARIN
  7. CHERATUSSIN [Concomitant]
     Active Substance: AMMONIUM CHLORIDE\DEXTROMETHORPHAN\SODIUM CITRATE
  8. TESSALON [Concomitant]
     Active Substance: BENZONATATE
  9. VISTARIL [Concomitant]
     Active Substance: HYDROXYZINE PAMOATE
  10. NEXIUM [Suspect]
     Active Substance: ESOMEPRAZOLE MAGNESIUM
     Route: 048
     Dates: start: 201406, end: 201606
  11. PRILOSEC OTC [Suspect]
     Active Substance: OMEPRAZOLE MAGNESIUM
     Indication: GASTROOESOPHAGEAL REFLUX DISEASE
     Route: 048
     Dates: start: 200806, end: 201606
  12. RANITIDINE. [Concomitant]
     Active Substance: RANITIDINE
  13. PROPOXYPHENE. [Concomitant]
     Active Substance: PROPOXYPHENE
  14. DIAZEPAM. [Concomitant]
     Active Substance: DIAZEPAM
  15. TRIAM/HCTZ [Concomitant]
     Active Substance: HYDROCHLOROTHIAZIDE\TRIAMTERENE
  16. ACULAR [Concomitant]
     Active Substance: KETOROLAC TROMETHAMINE
  17. BACTROBAN [Concomitant]
     Active Substance: MUPIROCIN\MUPIROCIN CALCIUM
  18. METHYLPREDNISOLONE. [Concomitant]
     Active Substance: METHYLPREDNISOLONE
  19. METAXALONE. [Concomitant]
     Active Substance: METAXALONE
  20. PRILOSEC [Suspect]
     Active Substance: OMEPRAZOLE MAGNESIUM
     Indication: GASTROOESOPHAGEAL REFLUX DISEASE
     Dosage: GENERIC
     Route: 065
     Dates: start: 2015
  21. PREVACID [Suspect]
     Active Substance: LANSOPRAZOLE
     Route: 065
     Dates: start: 200906, end: 201606
  22. PREVACID 24 HR [Suspect]
     Active Substance: LANSOPRAZOLE
     Indication: GASTROOESOPHAGEAL REFLUX DISEASE
     Route: 065
     Dates: start: 2008, end: 2016
  23. ALLOPURINOL. [Concomitant]
     Active Substance: ALLOPURINOL
  24. LISINOPRIL. [Concomitant]
     Active Substance: LISINOPRIL
  25. CLINDAMYCIN. [Concomitant]
     Active Substance: CLINDAMYCIN
  26. MELOXICAM. [Concomitant]
     Active Substance: MELOXICAM
  27. OXYCODONE/ APAP [Concomitant]
     Active Substance: ACETAMINOPHEN\OXYCODONE HYDROCHLORIDE
  28. GUAIFENEX [Concomitant]
     Active Substance: GUAIFENESIN\PHENYLEPHRINE\PHENYLPROPANOLAMINE
  29. FERROUS SULFATE. [Concomitant]
     Active Substance: FERROUS SULFATE
  30. SPIRONOLACTONE. [Concomitant]
     Active Substance: SPIRONOLACTONE
  31. PREDNISONE. [Concomitant]
     Active Substance: PREDNISONE
  32. NEXIUM 24HR [Suspect]
     Active Substance: ESOMEPRAZOLE MAGNESIUM
     Indication: GASTROOESOPHAGEAL REFLUX DISEASE
     Route: 048
     Dates: start: 2008, end: 2016
  33. PRILOSEC OTC [Suspect]
     Active Substance: OMEPRAZOLE MAGNESIUM
     Indication: GASTROOESOPHAGEAL REFLUX DISEASE
     Route: 048
     Dates: start: 2008, end: 2016
  34. IRBESARTAN. [Concomitant]
     Active Substance: IRBESARTAN
  35. DOXYCYCLINE. [Concomitant]
     Active Substance: DOXYCYCLINE
  36. IBUPROFEN. [Concomitant]
     Active Substance: IBUPROFEN
  37. FUROSEMIDE. [Concomitant]
     Active Substance: FUROSEMIDE
  38. ETODOLAC. [Concomitant]
     Active Substance: ETODOLAC
  39. MULTIVITAMIN [Concomitant]
     Active Substance: VITAMINS
  40. OXYCONTIN [Concomitant]
     Active Substance: OXYCODONE HYDROCHLORIDE
  41. NYSTATIN. [Concomitant]
     Active Substance: NYSTATIN
  42. FLUVIRIN NOS [Concomitant]
     Active Substance: INFLUENZA VIRUS VACCINE
  43. ACETAMINOPHEN?CODEINE [Concomitant]
     Active Substance: ACETAMINOPHEN\CODEINE PHOSPHATE
  44. NEXIUM 24HR [Suspect]
     Active Substance: ESOMEPRAZOLE MAGNESIUM
     Indication: GASTROOESOPHAGEAL REFLUX DISEASE
     Route: 048
     Dates: start: 201406, end: 201606
  45. FLUTICASONE. [Concomitant]
     Active Substance: FLUTICASONE
  46. HYDROCODONE [Concomitant]
     Active Substance: HYDROCODONE
  47. OXYCODONE [Concomitant]
     Active Substance: OXYCODONE
  48. PSEUDOVENT [Concomitant]
  49. CLARITHROMYCIN. [Concomitant]
     Active Substance: CLARITHROMYCIN
  50. PROVENTIL [Concomitant]
     Active Substance: ALBUTEROL
  51. PRILOSEC [Suspect]
     Active Substance: OMEPRAZOLE MAGNESIUM
     Indication: GASTROOESOPHAGEAL REFLUX DISEASE
     Dosage: GENERIC
     Route: 065
     Dates: start: 2010
  52. PRILOSEC [Suspect]
     Active Substance: OMEPRAZOLE MAGNESIUM
     Indication: GASTROOESOPHAGEAL REFLUX DISEASE
     Route: 048
     Dates: start: 200806, end: 201606
  53. ZANTAC [Concomitant]
     Active Substance: RANITIDINE HYDROCHLORIDE
  54. SULFAMETHOXAZOLE [Concomitant]
     Active Substance: SULFAMETHOXAZOLE
  55. LORAZEPAM. [Concomitant]
     Active Substance: LORAZEPAM
  56. INDOMETHACIN. [Concomitant]
     Active Substance: INDOMETHACIN
  57. NASONEX [Concomitant]
     Active Substance: MOMETASONE FUROATE
  58. KLOR?CON [Concomitant]
     Active Substance: POTASSIUM CHLORIDE
  59. CLOTRIMAZOLE. [Concomitant]
     Active Substance: CLOTRIMAZOLE
  60. GABAPENTIN. [Concomitant]
     Active Substance: GABAPENTIN
  61. LIOTHYRONINE [Concomitant]
     Active Substance: LIOTHYRONINE
  62. QVAR [Concomitant]
     Active Substance: BECLOMETHASONE DIPROPIONATE
  63. BORON [Concomitant]
     Active Substance: BORON

REACTIONS (4)
  - Chronic kidney disease [Not Recovered/Not Resolved]
  - Nephrogenic anaemia [Unknown]
  - Hyperparathyroidism secondary [Unknown]
  - Renal injury [Unknown]

NARRATIVE: CASE EVENT DATE: 2014
